FAERS Safety Report 8697619 (Version 2)
Quarter: 2012Q4

REPORT INFORMATION
  Report Type: 
  Country: US (occurrence: US)
  Receive Date: 20120801
  Receipt Date: 20120914
  Transmission Date: 20130627
  Serious: No
  Sender: FDA-Public Use
  Company Number: US-B.I. PHARMACEUTICALS,INC./RIDGEFIELD-2012-BP-16571BP

PATIENT
  Sex: Female

DRUGS (6)
  1. SPIRIVA [Suspect]
     Indication: ASTHMA
     Dosage: 18 mcg
     Route: 055
     Dates: start: 2008
  2. ATENOLOL [Concomitant]
     Indication: HEART RATE
  3. NEBULIZER [Concomitant]
     Indication: LOWER RESPIRATORY TRACT INFECTION
     Dates: start: 20120710
  4. SINGULAIR [Concomitant]
     Indication: ASTHMA
     Dates: start: 20100106
  5. CALTRATE WITH VITAMIN D [Concomitant]
  6. XANAX [Concomitant]

REACTIONS (2)
  - Dyspnoea [Not Recovered/Not Resolved]
  - Lower respiratory tract infection [Recovered/Resolved]
